FAERS Safety Report 14398627 (Version 1)
Quarter: 2018Q1

REPORT INFORMATION
  Report Type: Spontaneous
  Country: US (occurrence: US)
  Receive Date: 20180117
  Receipt Date: 20180117
  Transmission Date: 20180509
  Serious: No
  Sender: FDA-Public Use
  Company Number: US-TEVA-2018-US-845504

PATIENT
  Age: 22 Year
  Sex: Male

DRUGS (1)
  1. MINOXIDIL TSOL MN [Suspect]
     Active Substance: MINOXIDIL
     Indication: ALOPECIA
     Route: 065

REACTIONS (1)
  - Expired product administered [Unknown]
